FAERS Safety Report 11487439 (Version 2)
Quarter: 2016Q3

REPORT INFORMATION
  Report Type: Spontaneous
  Country: US (occurrence: US)
  Receive Date: 20150910
  Receipt Date: 20160816
  Transmission Date: 20161109
  Serious: Yes (Other)
  Sender: FDA-Public Use
  Company Number: US-ROCHE-1415998

PATIENT
  Sex: Female

DRUGS (3)
  1. PEGASYS [Suspect]
     Active Substance: PEGINTERFERON ALFA-2A
     Indication: POLYCYTHAEMIA VERA
     Dosage: 1 WEEKLY FOR 6 WEEKS
     Route: 058
     Dates: start: 20140513
  2. PEGASYS [Suspect]
     Active Substance: PEGINTERFERON ALFA-2A
     Route: 058
     Dates: start: 20150228
  3. PEGASYS [Suspect]
     Active Substance: PEGINTERFERON ALFA-2A
     Indication: HEPATITIS C
     Route: 058
     Dates: start: 20130421

REACTIONS (15)
  - Blood glucose increased [Not Recovered/Not Resolved]
  - Nausea [Unknown]
  - Oedema [Unknown]
  - Myalgia [Unknown]
  - Fatigue [Unknown]
  - Rash [Unknown]
  - Dermatitis allergic [Unknown]
  - Nausea [Not Recovered/Not Resolved]
  - Rash pruritic [Unknown]
  - Night sweats [Not Recovered/Not Resolved]
  - Injection site rash [Unknown]
  - Headache [Unknown]
  - Swelling [Unknown]
  - Pruritus [Unknown]
  - Anxiety [Unknown]
